FAERS Safety Report 9393657 (Version 1)
Quarter: 2013Q3

REPORT INFORMATION
  Report Type: Spontaneous
  Country: JP (occurrence: JP)
  Receive Date: 20130710
  Receipt Date: 20130710
  Transmission Date: 20140515
  Serious: Yes (Life-Threatening, Hospitalization)
  Sender: FDA-Public Use
  Company Number: JP-GLAXOSMITHKLINE-B0905623A

PATIENT
  Age: 2 Year
  Sex: Male

DRUGS (4)
  1. SERETIDE [Suspect]
     Indication: ASTHMA
     Dosage: 120IUAX PER DAY
     Route: 055
     Dates: start: 20130627
  2. ONON [Concomitant]
     Indication: ASTHMA
     Route: 048
     Dates: start: 20130627
  3. MUCODYNE [Concomitant]
     Indication: ASTHMA
     Route: 048
     Dates: start: 20130627
  4. MUCOSOLVAN [Concomitant]
     Indication: ASTHMA
     Route: 048
     Dates: start: 20130627

REACTIONS (3)
  - Loss of consciousness [Recovered/Resolved]
  - Pallor [Recovered/Resolved]
  - Overdose [Unknown]
